FAERS Safety Report 9266579 (Version 3)
Quarter: 2013Q2

REPORT INFORMATION
  Report Type: Spontaneous
  Country: JP (occurrence: JP)
  Receive Date: 20130502
  Receipt Date: 20130617
  Transmission Date: 20140414
  Serious: Yes (Hospitalization)
  Sender: FDA-Public Use
  Company Number: PHHY2013JP021123

PATIENT
  Age: 85 Year
  Sex: Female

DRUGS (10)
  1. TEGRETOL [Suspect]
     Indication: EPILEPSY
     Dosage: 100 MG, BID
     Route: 048
     Dates: start: 20080712, end: 20120407
  2. EXELON PATCH [Suspect]
     Indication: DEMENTIA ALZHEIMER^S TYPE
     Dosage: 4.5 MG, DAILY
     Route: 062
     Dates: start: 20111228, end: 20120128
  3. ARTIST [Suspect]
     Dosage: 2.5 MG, BID
     Route: 048
  4. REMINYL [Suspect]
     Indication: DEMENTIA ALZHEIMER^S TYPE
     Dosage: 8 MG, BID
     Route: 048
     Dates: start: 20110709, end: 20111228
  5. HALFDIGOXIN [Suspect]
     Dosage: 0.125 MG, UNK
     Route: 048
  6. NEODOPASTON [Concomitant]
     Indication: CEREBRAL INFARCTION
     Dosage: UNK
     Route: 048
     Dates: start: 20110409
  7. SERMION [Concomitant]
     Indication: CEREBRAL INFARCTION
     Dosage: UNK
     Route: 048
     Dates: start: 20090131
  8. RENIVACE [Concomitant]
     Route: 048
  9. LASIX [Concomitant]
     Route: 048
  10. ALDACTONE 100 [Concomitant]
     Route: 048

REACTIONS (2)
  - Loss of consciousness [Recovered/Resolved]
  - Bradycardia [Recovered/Resolved]
